FAERS Safety Report 16883465 (Version 1)
Quarter: 2019Q4

REPORT INFORMATION
  Report Type: Spontaneous
  Country: US (occurrence: US)
  Receive Date: 20191004
  Receipt Date: 20191004
  Transmission Date: 20200122
  Serious: Yes (Hospitalization, Other)
  Sender: FDA-Public Use
  Company Number: US-GLAND PHARMA LIMITED-2075284

PATIENT
  Age: 54 Year
  Sex: Male

DRUGS (5)
  1. RAMUCIRUMAB [Suspect]
     Active Substance: RAMUCIRUMAB
  2. OXALIPLATIN. [Suspect]
     Active Substance: OXALIPLATIN
     Indication: GASTROINTESTINAL ADENOCARCINOMA
  3. PACLITAXEL. [Suspect]
     Active Substance: PACLITAXEL
  4. LEUCOVORIN. [Suspect]
     Active Substance: LEUCOVORIN
  5. FLUOROURACIL. [Suspect]
     Active Substance: FLUOROURACIL

REACTIONS (9)
  - Weight decreased [Unknown]
  - Odynophagia [Recovering/Resolving]
  - Septic shock [Unknown]
  - Dysphagia [Recovering/Resolving]
  - Mucosal toxicity [Unknown]
  - Recall phenomenon [Unknown]
  - Neutropenia [Unknown]
  - Dysphonia [Unknown]
  - Oesophageal candidiasis [Unknown]
